FAERS Safety Report 4290057-3 (Version None)
Quarter: 2004Q1

REPORT INFORMATION
  Report Type: 
  Country: None (occurrence: None)
  Receive Date: 20040209
  Receipt Date: 20040125
  Transmission Date: 20041129
  Serious: No
  Sender: FDA-Public Use
  Company Number: 204055

PATIENT
  Age: 23 Year
  Sex: Female
  Weight: 66.2 kg

DRUGS (1)
  1. XOLAIR [Suspect]
     Indication: ASTHMA
     Dosage: 225 MG, Q2W, SUBCUTANEOUS
     Route: 058
     Dates: start: 20031011, end: 20031223

REACTIONS (1)
  - ANAPHYLACTOID REACTION [None]
